FAERS Safety Report 18873837 (Version 1)
Quarter: 2021Q1

REPORT INFORMATION
  Report Type: Spontaneous
  Country: US (occurrence: US)
  Receive Date: 20210210
  Receipt Date: 20210210
  Transmission Date: 20210420
  Serious: No
  Sender: FDA-Public Use
  Company Number: US-QILU PHARMACEUTICAL CO.LTD.-QLU-000298-2020

PATIENT
  Age: 48 Year
  Sex: Female

DRUGS (1)
  1. CEFTRIAXONE. [Suspect]
     Active Substance: CEFTRIAXONE
     Indication: OTITIS MEDIA ACUTE
     Dosage: 1 GRAM
     Route: 065
     Dates: start: 20201109

REACTIONS (2)
  - No adverse event [Unknown]
  - Expired product administered [Unknown]

NARRATIVE: CASE EVENT DATE: 20201109
